FAERS Safety Report 16095255 (Version 1)
Quarter: 2019Q1

REPORT INFORMATION
  Report Type: Spontaneous
  Country: US (occurrence: US)
  Receive Date: 20190320
  Receipt Date: 20190320
  Transmission Date: 20190418
  Serious: Yes (Hospitalization)
  Sender: FDA-Public Use
  Company Number: US-CASPER PHARMA LLC-2019CAS000108

PATIENT
  Age: 21 Year
  Sex: Female

DRUGS (3)
  1. VITAMIN A PALMITATE [Suspect]
     Active Substance: VITAMIN A PALMITATE
     Dosage: 500000 INTERNATIONAL UNIT, QD
     Route: 065
  2. VITAMIN A PALMITATE [Suspect]
     Active Substance: VITAMIN A PALMITATE
     Dosage: 50000 INTERNATIONAL UNIT, QD
     Route: 065
  3. VITAMIN A PALMITATE [Suspect]
     Active Substance: VITAMIN A PALMITATE
     Indication: ICHTHYOSIS
     Dosage: 25000 INTERNATIONAL UNIT
     Route: 065

REACTIONS (11)
  - Pigmentation disorder [Recovered/Resolved]
  - Dizziness [Recovered/Resolved]
  - Calcinosis [Recovered/Resolved]
  - Pruritus [Recovered/Resolved]
  - Bone pain [Recovered/Resolved]
  - Diplopia [Recovered/Resolved]
  - Headache [Recovered/Resolved]
  - Weight decreased [Recovered/Resolved]
  - Hyperkeratosis [Recovered/Resolved]
  - Hypervitaminosis A [Recovered/Resolved]
  - Product use in unapproved indication [Unknown]
